FAERS Safety Report 26133713 (Version 1)
Quarter: 2025Q4

REPORT INFORMATION
  Report Type: Spontaneous
  Country: EU (occurrence: EU)
  Receive Date: 20251209
  Receipt Date: 20251209
  Transmission Date: 20260117
  Serious: Yes (Hospitalization)
  Sender: ROCHE
  Company Number: None

PATIENT
  Age: 55 Year
  Sex: Male
  Weight: 66 kg

DRUGS (2)
  1. VEMURAFENIB [Suspect]
     Active Substance: VEMURAFENIB
     Indication: Hairy cell leukaemia
     Dosage: 2 X 4 TABLETS??VEMURAFENIB TEMPORARILY STOPPED (FROM 23/10-27/10) AND RESTARTED AFTER CONSULTATION AT LOWER DOSES, ON 2X3 TABLETS ON 27-10-2025
     Route: 048
     Dates: start: 20251008
  2. RITUXIMAB INFUUS / Brand name not specified [Concomitant]
     Dosage: INFUUS, 1 MG/MG (MILLIGRAM PER MILLIGRAM)

REACTIONS (2)
  - Toxic skin eruption [Recovered/Resolved]
  - Pyrexia [Recovered/Resolved]
